FAERS Safety Report 14921080 (Version 5)
Quarter: 2018Q3

REPORT INFORMATION
  Report Type: Spontaneous
  Country: US (occurrence: US)
  Receive Date: 20180521
  Receipt Date: 20180927
  Transmission Date: 20181010
  Serious: Yes (Congenital Anomaly, Other)
  Sender: FDA-Public Use
  Company Number: PHEH2018US019618

PATIENT
  Sex: Female

DRUGS (3)
  1. ZOFRAN ODT [Suspect]
     Active Substance: ONDANSETRON HYDROCHLORIDE
     Indication: FOETAL EXPOSURE DURING PREGNANCY
     Dosage: MOTHER DOSE: 4 MG, PRN
     Route: 064
  2. ZOFRAN [Suspect]
     Active Substance: ONDANSETRON HYDROCHLORIDE
     Indication: FOETAL EXPOSURE DURING PREGNANCY
     Route: 064
  3. ZOFRAN [Suspect]
     Active Substance: ONDANSETRON HYDROCHLORIDE
     Indication: FOETAL EXPOSURE DURING PREGNANCY
     Dosage: MOTHER DOSE: 04 MG
     Route: 064

REACTIONS (22)
  - Pneumonia [Unknown]
  - Pyrexia [Unknown]
  - Nasal congestion [Unknown]
  - Velopharyngeal incompetence [Unknown]
  - Nasopharyngitis [Unknown]
  - Injury [Unknown]
  - Cough [Unknown]
  - Snoring [Unknown]
  - Foetal exposure during pregnancy [Unknown]
  - Dyspnoea [Unknown]
  - Discomfort [Unknown]
  - Vomiting [Unknown]
  - Otitis media acute [Unknown]
  - Pharyngitis streptococcal [Unknown]
  - Cleft palate [Unknown]
  - Ear pain [Unknown]
  - Diarrhoea [Unknown]
  - Headache [Unknown]
  - Rash [Unknown]
  - Acute sinusitis [Unknown]
  - Abdominal pain [Unknown]
  - Wheezing [Unknown]
